FAERS Safety Report 8277886-6 (Version None)
Quarter: 2012Q2

REPORT INFORMATION
  Report Type: 
  Country: None (occurrence: None)
  Receive Date: 20120412
  Receipt Date: 20120402
  Transmission Date: 20120825
  Serious: Yes (Hospitalization)
  Sender: FDA-Public Use
  Company Number: US-ELI_LILLY_AND_COMPANY-US201203006019

PATIENT
  Sex: Female

DRUGS (4)
  1. FORTEO [Suspect]
     Dosage: 20 UG, QD
     Dates: start: 20120304
  2. FORTEO [Suspect]
     Indication: OSTEOPOROSIS
     Dosage: 20 UG, QD
     Dates: start: 20120301
  3. LIPITOR [Concomitant]
  4. SUCRALFATE [Concomitant]
     Indication: GASTROINTESTINAL DISORDER

REACTIONS (5)
  - DEHYDRATION [None]
  - MUSCULAR WEAKNESS [None]
  - VOMITING [None]
  - NAUSEA [None]
  - ULCER HAEMORRHAGE [None]
